FAERS Safety Report 6765381-2 (Version None)
Quarter: 2010Q2

REPORT INFORMATION
  Report Type: 
  Country: None (occurrence: None)
  Receive Date: 20100611
  Receipt Date: 20100601
  Transmission Date: 20101027
  Serious: Yes (Life-Threatening, Hospitalization)
  Sender: FDA-Public Use
  Company Number: GB-TEVA-236547ISR

PATIENT
  Age: 90 Year
  Sex: Female

DRUGS (1)
  1. ALENDRONIC ACID [Suspect]
     Route: 048
     Dates: end: 20100517

REACTIONS (2)
  - HAEMOGLOBIN DECREASED [None]
  - OESOPHAGITIS [None]
